FAERS Safety Report 18599298 (Version 3)
Quarter: 2021Q1

REPORT INFORMATION
  Report Type: Report from Study
  Country: US (occurrence: US)
  Receive Date: 20201210
  Receipt Date: 20210218
  Transmission Date: 20210419
  Serious: Yes (Hospitalization)
  Sender: FDA-Public Use
  Company Number: US-ASTELLAS-2020US043206

PATIENT
  Sex: Female

DRUGS (1)
  1. ASP2215 [Suspect]
     Active Substance: GILTERITINIB
     Indication: ACUTE MONOCYTIC LEUKAEMIA
     Route: 048
     Dates: start: 20201117

REACTIONS (3)
  - Rash pruritic [Not Recovered/Not Resolved]
  - White blood cell count decreased [Unknown]
  - Pyrexia [Unknown]
